FAERS Safety Report 7677212-7 (Version None)
Quarter: 2011Q3

REPORT INFORMATION
  Report Type: 
  Country: None (occurrence: None)
  Receive Date: 20110811
  Receipt Date: 20110809
  Transmission Date: 20111222
  Serious: Yes (Other)
  Sender: FDA-Public Use
  Company Number: US-TEVA-292606USA

PATIENT
  Sex: Female

DRUGS (2)
  1. CLARAVIS [Suspect]
     Dosage: 80 MILLIGRAM;
     Dates: start: 20110301, end: 20110716
  2. CLARAVIS [Suspect]
     Dosage: 80 MILLIGRAM;
     Dates: start: 20110416, end: 20110701

REACTIONS (1)
  - UNINTENDED PREGNANCY [None]
